FAERS Safety Report 20544740 (Version 1)
Quarter: 2022Q1

REPORT INFORMATION
  Report Type: Spontaneous
  Country: CN (occurrence: CN)
  Receive Date: 20220303
  Receipt Date: 20220303
  Transmission Date: 20220423
  Serious: Yes (Other)
  Sender: FDA-Public Use
  Company Number: CN-BAXTER-2022BAX004036

PATIENT
  Age: 83 Year
  Sex: Male
  Weight: 65 kg

DRUGS (7)
  1. DEXTROSE [Suspect]
     Active Substance: DEXTROSE
     Indication: Fluid replacement
     Route: 041
     Dates: start: 20220215, end: 20220217
  2. DEXTROSE [Suspect]
     Active Substance: DEXTROSE
     Indication: Medication dilution
     Route: 041
     Dates: start: 20220216, end: 20220219
  3. SODIUM CHLORIDE [Suspect]
     Active Substance: SODIUM CHLORIDE
     Indication: Medication dilution
     Route: 041
     Dates: start: 20220214, end: 20220216
  4. POTASSIUM CHLORIDE [Suspect]
     Active Substance: POTASSIUM CHLORIDE
     Indication: Fluid replacement
     Route: 041
     Dates: start: 20220215, end: 20220217
  5. ESOMEPRAZOLE SODIUM [Suspect]
     Active Substance: ESOMEPRAZOLE SODIUM
     Indication: Prophylaxis against gastrointestinal ulcer
     Route: 041
     Dates: start: 20220214, end: 20220216
  6. PIPERACILLIN SODIUM\TAZOBACTAM SODIUM [Suspect]
     Active Substance: PIPERACILLIN SODIUM\TAZOBACTAM SODIUM
     Indication: Anti-infective therapy
     Route: 041
     Dates: start: 20220216, end: 20220219
  7. INSULIN HUMAN [Suspect]
     Active Substance: INSULIN HUMAN
     Indication: Fluid replacement
     Dosage: 8U
     Route: 041
     Dates: start: 20220215, end: 20220217

REACTIONS (6)
  - Palpitations [Recovering/Resolving]
  - Chest discomfort [Recovering/Resolving]
  - Temperature intolerance [Recovering/Resolving]
  - Chills [Recovering/Resolving]
  - Heart rate increased [Recovering/Resolving]
  - Body temperature increased [Recovering/Resolving]

NARRATIVE: CASE EVENT DATE: 20220216
